FAERS Safety Report 21132533 (Version 1)
Quarter: 2022Q3

REPORT INFORMATION
  Report Type: Spontaneous
  Country: US (occurrence: US)
  Receive Date: 20220726
  Receipt Date: 20220726
  Transmission Date: 20221026
  Serious: Yes (Other)
  Sender: FDA-Public Use
  Company Number: US-GE HEALTHCARE-2022CSU005061

PATIENT
  Sex: Female

DRUGS (1)
  1. DATSCAN [Suspect]
     Active Substance: IODINE\IOFLUPANE I-123
     Indication: Generalised tonic-clonic seizure
     Dosage: UNK UNK, SINGLE
     Route: 065

REACTIONS (1)
  - Seizure [Unknown]
